FAERS Safety Report 7293815-6 (Version None)
Quarter: 2011Q1

REPORT INFORMATION
  Report Type: 
  Country: None (occurrence: None)
  Receive Date: 20110204
  Receipt Date: 20110124
  Transmission Date: 20110831
  Serious: Yes (Other)
  Sender: FDA-Public Use
  Company Number: USA/USA/11/0017246

PATIENT
  Age: 68 Year
  Sex: Female

DRUGS (2)
  1. RADIOTHERAPY [Suspect]
     Indication: BREAST CANCER
     Dosage: 5 IN 1 WK
  2. SILVER SULFADIAZINE (SULFADIAZINE SILVER) [Suspect]
     Dosage: 3 IN 1 D, TOPICAL
     Route: 061
     Dates: start: 20110120

REACTIONS (1)
  - APPLICATION SITE PAIN [None]
